FAERS Safety Report 19423784 (Version 4)
Quarter: 2022Q1

REPORT INFORMATION
  Report Type: Spontaneous
  Country: CZ (occurrence: CZ)
  Receive Date: 20210616
  Receipt Date: 20220308
  Transmission Date: 20220424
  Serious: Yes (Other)
  Sender: FDA-Public Use
  Company Number: CZ-MYLANLABS-2021M1034079

PATIENT
  Age: 69 Year
  Sex: Male

DRUGS (19)
  1. PACLITAXEL [Suspect]
     Active Substance: PACLITAXEL
     Indication: Transitional cell cancer of renal pelvis and ureter metastatic
     Dosage: 175 MILLIGRAM/SQ. METER EVERY 21 YEARS
  2. PACLITAXEL [Suspect]
     Active Substance: PACLITAXEL
     Indication: Transitional cell carcinoma metastatic
  3. GEMCITABINE [Suspect]
     Active Substance: GEMCITABINE
     Indication: Transitional cell carcinoma
     Dosage: UNK.~1 YEAR
  4. GEMCITABINE [Suspect]
     Active Substance: GEMCITABINE
     Indication: Transitional cell carcinoma metastatic
     Dosage: UNK, UNK, CYCLIC (7 CYCLES)
     Route: 065
     Dates: end: 201803
  5. GEMCITABINE [Suspect]
     Active Substance: GEMCITABINE
     Indication: Transitional cell cancer of the renal pelvis and ureter
     Dosage: UNK, SEVEN SERIES OF COMBINATION GEMCITABIN
     Route: 065
     Dates: start: 2017, end: 201803
  6. GEMCITABINE [Suspect]
     Active Substance: GEMCITABINE
     Indication: Renal cancer metastatic
  7. CARBOPLATIN [Suspect]
     Active Substance: CARBOPLATIN
     Indication: Transitional cell carcinoma
     Dosage: UNK, CYCLE, UNK, CYCLIC (7 CYCLES)
     Route: 065
     Dates: end: 201803
  8. CARBOPLATIN [Suspect]
     Active Substance: CARBOPLATIN
     Indication: Transitional cell carcinoma metastatic
     Dosage: UNK, SEVEN SERIES OF COMBINATION GEMCITABIN
     Route: 065
     Dates: start: 2017, end: 201803
  9. CARBOPLATIN [Suspect]
     Active Substance: CARBOPLATIN
     Indication: Renal cancer metastatic
     Dosage: UNK
     Route: 065
     Dates: start: 2017, end: 201803
  10. CARBOPLATIN [Suspect]
     Active Substance: CARBOPLATIN
     Indication: Transitional cell cancer of the renal pelvis and ureter
     Dosage: UNK UNK, CYCLICAL
     Route: 065
     Dates: start: 201803
  11. CARBOPLATIN [Suspect]
     Active Substance: CARBOPLATIN
     Indication: Renal cancer
  12. PACLITAXEL [Suspect]
     Active Substance: PACLITAXEL
     Indication: Transitional cell cancer of the renal pelvis and ureter
     Dosage: 175 MILLIGRAM/SQ. METER, 8.3333 MG/M2 DAILY; ELEVEN SERIES IN TOTAL
     Dates: start: 2019
  13. PACLITAXEL [Suspect]
     Active Substance: PACLITAXEL
     Indication: Transitional cell carcinoma metastatic
     Dosage: 175 MILLIGRAM/SQ. METER,175 MILLIGRAM/SQ. METER EVERY 21 DAYS
     Dates: start: 2019, end: 202006
  14. PACLITAXEL [Suspect]
     Active Substance: PACLITAXEL
     Indication: Renal cancer metastatic
     Dosage: 175 MG/M2, OTHER
     Route: 042
     Dates: start: 201803
  15. PACLITAXEL [Suspect]
     Active Substance: PACLITAXEL
     Indication: Transitional cell cancer of renal pelvis and ureter metastatic
     Dosage: 175 MG/M2, OTHER
     Route: 042
     Dates: end: 201803
  16. GEMCITABINE HYDROCHLORIDE [Suspect]
     Active Substance: GEMCITABINE HYDROCHLORIDE
     Indication: Renal cancer metastatic
     Dosage: UNK UNK, CYCLICAL
     Route: 065
     Dates: start: 201803
  17. GEMCITABINE HYDROCHLORIDE [Suspect]
     Active Substance: GEMCITABINE HYDROCHLORIDE
     Indication: Transitional cell carcinoma metastatic
  18. GEMCITABINE HYDROCHLORIDE [Suspect]
     Active Substance: GEMCITABINE HYDROCHLORIDE
     Indication: Transitional cell carcinoma
  19. CARBOPLATIN\GEMCITABINE [Concomitant]
     Active Substance: CARBOPLATIN\GEMCITABINE
     Indication: Renal cancer
     Dosage: UNK

REACTIONS (8)
  - Leukopenia [Recovered/Resolved]
  - Chronic kidney disease [Unknown]
  - Metastases to lung [Unknown]
  - Thrombophlebitis [Recovered/Resolved]
  - Disease progression [Unknown]
  - Renal failure [Unknown]
  - Off label use [Unknown]
  - Product use in unapproved indication [Unknown]

NARRATIVE: CASE EVENT DATE: 20170101
